FAERS Safety Report 5913831-3 (Version None)
Quarter: 2008Q4

REPORT INFORMATION
  Report Type: 
  Country: None (occurrence: None)
  Receive Date: 20081009
  Receipt Date: 20081002
  Transmission Date: 20090506
  Serious: Yes (Congenital Anomaly)
  Sender: FDA-Public Use
  Company Number: A0727762A

PATIENT
  Sex: Male

DRUGS (4)
  1. PAROXETINE HYDROCHLORIDE [Suspect]
     Indication: DEPRESSION
     Dosage: 20MG PER DAY
     Dates: start: 20040302, end: 20050801
  2. PAXIL [Suspect]
     Indication: DEPRESSION
     Dates: start: 20030301, end: 20040101
  3. VITAMIN TAB [Concomitant]
  4. NASONEX [Concomitant]
     Dates: start: 20050701

REACTIONS (18)
  - ASPIRATION [None]
  - ASTHMA [None]
  - ATRIAL SEPTAL DEFECT [None]
  - CARDIAC FAILURE CONGESTIVE [None]
  - CEREBRAL ATROPHY [None]
  - CEREBRAL PALSY [None]
  - CONVULSION [None]
  - DRUG EXPOSURE DURING PREGNANCY [None]
  - FAILURE TO THRIVE [None]
  - FALLOT'S TETRALOGY [None]
  - FEEDING DISORDER NEONATAL [None]
  - GASTROOESOPHAGEAL REFLUX DISEASE [None]
  - HYPERTENSION [None]
  - LUNG DISORDER [None]
  - MULTIPLE CONGENITAL ABNORMALITIES [None]
  - PNEUMONIA [None]
  - PULMONARY ARTERY STENOSIS CONGENITAL [None]
  - VENTRICULAR SEPTAL DEFECT [None]
